FAERS Safety Report 11089361 (Version 1)
Quarter: 2015Q2

REPORT INFORMATION
  Report Type: Spontaneous
  Country: US (occurrence: None)
  Receive Date: 20150504
  Receipt Date: 20150504
  Transmission Date: 20150821
  Serious: No
  Sender: FDA-Public Use
  Company Number: None

PATIENT
  Age: 36 Year
  Sex: Male

DRUGS (1)
  1. HUMIRA [Suspect]
     Active Substance: ADALIMUMAB
     Indication: ENTERITIS
     Dosage: 40 MG, EVERY 2 WEEKS, SQ
     Route: 058
     Dates: start: 20140601

REACTIONS (2)
  - Irritability [None]
  - Condition aggravated [None]
